FAERS Safety Report 18664293 (Version 1)
Quarter: 2020Q4

REPORT INFORMATION
  Report Type: Spontaneous
  Country: GB (occurrence: GB)
  Receive Date: 20201225
  Receipt Date: 20201225
  Transmission Date: 20210114
  Serious: Yes (Other)
  Sender: FDA-Public Use
  Company Number: GB-TEVA-2020-GB-1860931

PATIENT
  Age: 71 Year
  Sex: Female
  Weight: 57.15 kg

DRUGS (6)
  1. DILTIAZEM HYDROCHLORIDE. [Concomitant]
     Active Substance: DILTIAZEM HYDROCHLORIDE
  2. TEVA UK LEVOTHYROXINE [Suspect]
     Active Substance: LEVOTHYROXINE
     Dosage: UNIT DOSE :  25 MG
     Route: 048
     Dates: start: 202008, end: 20201124
  3. OMEPRAZOLE. [Concomitant]
     Active Substance: OMEPRAZOLE
  4. ATORVASTATIN [Concomitant]
     Active Substance: ATORVASTATIN
  5. ACETYLSALICYLIC ACID [Concomitant]
     Active Substance: ASPIRIN
  6. TEVA UK LEVOTHYROXINE [Suspect]
     Active Substance: LEVOTHYROXINE
     Indication: HYPOTHYROIDISM
     Dosage: UNIT DOSE :  50 MG
     Route: 048
     Dates: start: 202008, end: 20201124

REACTIONS (14)
  - Balance disorder [Unknown]
  - Tremor [Recovering/Resolving]
  - Headache [Recovering/Resolving]
  - Blood pressure increased [Recovering/Resolving]
  - Asthenia [Unknown]
  - Muscle spasms [Recovering/Resolving]
  - Hypopnoea [Unknown]
  - Chest pain [Recovering/Resolving]
  - Arthralgia [Unknown]
  - Dizziness [Unknown]
  - Abnormal loss of weight [Unknown]
  - Oropharyngeal discomfort [Recovering/Resolving]
  - Vision blurred [Recovering/Resolving]
  - Insomnia [Recovering/Resolving]

NARRATIVE: CASE EVENT DATE: 20200814
